FAERS Safety Report 7346970-3 (Version None)
Quarter: 2011Q1

REPORT INFORMATION
  Report Type: 
  Country: None (occurrence: None)
  Receive Date: 20110311
  Receipt Date: 20110225
  Transmission Date: 20110831
  Serious: Yes (Hospitalization, Other)
  Sender: FDA-Public Use
  Company Number: PHHY2011MX13371

PATIENT
  Sex: Female

DRUGS (2)
  1. CO-DIOVAN [Suspect]
     Dosage: 160 MG VALS AND 12.5 MG HYDR
     Route: 048
     Dates: start: 20110223
  2. CO-DIOVAN [Suspect]
     Indication: HYPERTENSION
     Dosage: 160 MG VALS AND 12.5 MG HYDR
     Route: 048
     Dates: start: 20091008, end: 20110204

REACTIONS (16)
  - LIMB DISCOMFORT [None]
  - VISUAL ACUITY REDUCED [None]
  - GASTROINTESTINAL DISORDER [None]
  - ABDOMINAL DISCOMFORT [None]
  - SWELLING [None]
  - GASTRITIS [None]
  - BLOOD PRESSURE INCREASED [None]
  - DYSPEPSIA [None]
  - CONSTIPATION [None]
  - JOINT DISLOCATION [None]
  - FALL [None]
  - BLOOD GLUCOSE INCREASED [None]
  - CHILLS [None]
  - ERUCTATION [None]
  - BURNING SENSATION [None]
  - CONTUSION [None]
